FAERS Safety Report 5311116-X (Version None)
Quarter: 2007Q2

REPORT INFORMATION
  Report Type: 
  Country: None (occurrence: None)
  Receive Date: 20070423
  Receipt Date: 20070412
  Transmission Date: 20071010
  Serious: Yes (Hospitalization)
  Sender: FDA-Public Use
  Company Number: GXKR2007FR03207

PATIENT
  Age: 22 Year
  Sex: Female

DRUGS (3)
  1. DEXTROPROPOXYPHENE+PARACETAMOL (NGX) (DEXTROPROPOXYPHENE, PARACETAMOL) [Suspect]
     Indication: TOOTHACHE
     Dosage: ORAL
     Route: 048
     Dates: start: 20070307, end: 20070313
  2. AMOXICILLIN AND CLAVULANATE POTASSIUM [Suspect]
     Indication: TOOTHACHE
     Dosage: ORAL
     Route: 048
     Dates: start: 20070307, end: 20070314
  3. NIFLUMIC ACID (NIFLUMIC ACID) [Suspect]
     Indication: TOOTHACHE
     Dosage: ORAL
     Route: 048
     Dates: start: 20070307, end: 20070313

REACTIONS (3)
  - HYPERSENSITIVITY [None]
  - LYMPHOPENIA [None]
  - TOXIC SKIN ERUPTION [None]
